FAERS Safety Report 10205932 (Version 2)
Quarter: 2014Q2

REPORT INFORMATION
  Report Type: Spontaneous
  Country: US (occurrence: US)
  Receive Date: 20140530
  Receipt Date: 20140530
  Transmission Date: 20141212
  Serious: Yes (Hospitalization, Other)
  Sender: FDA-Public Use
  Company Number: US-RB-065834-14

PATIENT
  Age: 53 Year
  Sex: Female

DRUGS (1)
  1. MUCINEX FAST MAX SEVERE CONGESTION AND COUGH LIQUID [Suspect]
     Indication: PRODUCT USED FOR UNKNOWN INDICATION
     Route: 048
     Dates: start: 20140504

REACTIONS (2)
  - Blood glucose increased [Recovered/Resolved]
  - Pollakiuria [Recovered/Resolved]
